FAERS Safety Report 4853280-2 (Version None)
Quarter: 2005Q4

REPORT INFORMATION
  Report Type: 
  Country: None (occurrence: None)
  Receive Date: 20051214
  Receipt Date: 20051107
  Transmission Date: 20060501
  Serious: Yes (Disabling)
  Sender: FDA-Public Use
  Company Number: US-GLAXOSMITHKLINE-A0581196A

PATIENT
  Age: 40 Year
  Sex: Male

DRUGS (5)
  1. REQUIP [Suspect]
     Dosage: 1MG PER DAY
     Route: 048
     Dates: start: 20050101
  2. LUNESTA [Concomitant]
  3. ENALAPRIL [Concomitant]
  4. PRAVACHOL [Concomitant]
  5. CARTIA XT [Concomitant]

REACTIONS (4)
  - BODY TEMPERATURE DECREASED [None]
  - HALLUCINATION [None]
  - NAUSEA [None]
  - TREMOR [None]
